FAERS Safety Report 13781661 (Version 1)
Quarter: 2017Q3

REPORT INFORMATION
  Report Type: Spontaneous
  Country: CA (occurrence: CA)
  Receive Date: 20170724
  Receipt Date: 20170724
  Transmission Date: 20171127
  Serious: Yes (Other)
  Sender: FDA-Public Use
  Company Number: CA-PFIZER INC-3033622

PATIENT
  Age: 52 Year
  Sex: Female

DRUGS (2)
  1. METHOTREXATE SODIUM. [Suspect]
     Active Substance: METHOTREXATE SODIUM
     Indication: RHEUMATOID ARTHRITIS
     Dosage: 20 MG, DAILY DOSAGE: 2.86, FREQ: 1 WEEK; INTERVAL: 1
     Route: 048
  2. XELJANZ [Suspect]
     Active Substance: TOFACITINIB CITRATE
     Indication: RHEUMATOID ARTHRITIS
     Dosage: 5 MG, DAILY DOSAGE: 10MG,  FREQ: 2 DAY; INTERVAL: 1
     Route: 048
     Dates: start: 20150513

REACTIONS (12)
  - Hepatic pain [Not Recovered/Not Resolved]
  - Abdominal distension [Not Recovered/Not Resolved]
  - Swelling [Not Recovered/Not Resolved]
  - Dissociation [Not Recovered/Not Resolved]
  - Pain [Recovering/Resolving]
  - Fatigue [Not Recovered/Not Resolved]
  - Loss of personal independence in daily activities [Not Recovered/Not Resolved]
  - Abdominal pain [Not Recovered/Not Resolved]
  - Social problem [Not Recovered/Not Resolved]
  - Abdominal pain upper [Recovering/Resolving]
  - Malaise [Not Recovered/Not Resolved]
  - Psychiatric symptom [Not Recovered/Not Resolved]

NARRATIVE: CASE EVENT DATE: 201508
